FAERS Safety Report 11170108 (Version 2)
Quarter: 2015Q4

REPORT INFORMATION
  Report Type: Spontaneous
  Country: IT (occurrence: IT)
  Receive Date: 20150608
  Receipt Date: 20151007
  Transmission Date: 20160304
  Serious: Yes (Hospitalization)
  Sender: FDA-Public Use
  Company Number: IT-AUROBINDO-AUR-APL-2015-04915

PATIENT
  Age: 87 Year
  Sex: Male
  Weight: 80 kg

DRUGS (4)
  1. ACETYLSALICYLIC ACID [Concomitant]
     Active Substance: ASPIRIN
     Indication: ACUTE MYOCARDIAL INFARCTION
     Dosage: 100 MG, UNK
     Route: 048
  2. DONEPEZIL. [Suspect]
     Active Substance: DONEPEZIL
     Indication: DEMENTIA
  3. ACETYLSALICYLIC ACID [Concomitant]
     Active Substance: ASPIRIN
     Dosage: 100 MG
  4. DONEPEZIL. [Suspect]
     Active Substance: DONEPEZIL
     Indication: DEMENTIA
     Dosage: 2 DF DAILY
     Route: 048
     Dates: start: 20130701, end: 20150528

REACTIONS (2)
  - Anaemia [Recovering/Resolving]
  - Gastritis erosive [Recovering/Resolving]

NARRATIVE: CASE EVENT DATE: 20150401
